FAERS Safety Report 5007511-9 (Version None)
Quarter: 2006Q2

REPORT INFORMATION
  Report Type: 
  Country: None (occurrence: None)
  Receive Date: 20060403
  Receipt Date: 20050222
  Transmission Date: 20061013
  Serious: Yes (Life-Threatening, Hospitalization)
  Sender: FDA-Public Use
  Company Number: BDI-006973

PATIENT
  Age: 58 Year
  Sex: Male

DRUGS (4)
  1. GASTROGRAFIN [Suspect]
     Indication: COMPUTERISED TOMOGRAM
     Dosage: 10 ML ONCE PO
     Route: 048
  2. GASTROGRAFIN [Suspect]
     Indication: INJURY
     Dosage: 10 ML ONCE PO
     Route: 048
  3. MD-GASTROVIEW [Suspect]
     Dosage: 10 ML ONCE PO
     Route: 048
  4. OXYGEN [Concomitant]

REACTIONS (1)
  - ANAPHYLACTOID REACTION [None]
